FAERS Safety Report 18090887 (Version 2)
Quarter: 2020Q3

REPORT INFORMATION
  Report Type: Spontaneous
  Country: GB (occurrence: GB)
  Receive Date: 20200730
  Receipt Date: 20200905
  Transmission Date: 20201103
  Serious: Yes (Other)
  Sender: FDA-Public Use
  Company Number: GB-ACCORD-192943

PATIENT
  Age: 30 Year
  Sex: Female
  Weight: 53.97 kg

DRUGS (2)
  1. SERTRALINE [Suspect]
     Active Substance: SERTRALINE HYDROCHLORIDE
     Indication: STRESS AT WORK
     Route: 048
     Dates: start: 20180718
  2. NYTOL [Concomitant]
     Active Substance: DIPHENHYDRAMINE HYDROCHLORIDE

REACTIONS (2)
  - Restless legs syndrome [Unknown]
  - Bruxism [Unknown]

NARRATIVE: CASE EVENT DATE: 20180718
